FAERS Safety Report 18429487 (Version 2)
Quarter: 2020Q4

REPORT INFORMATION
  Report Type: Spontaneous
  Country: US (occurrence: US)
  Receive Date: 20201026
  Receipt Date: 20201210
  Transmission Date: 20210114
  Serious: No
  Sender: FDA-Public Use
  Company Number: US-ASTRAZENECA-2020SF34710

PATIENT
  Sex: Female

DRUGS (1)
  1. BYDUREON BCISE [Suspect]
     Active Substance: EXENATIDE
     Indication: DIABETES MELLITUS
     Dosage: 2-ONCE A WEEK
     Route: 065
     Dates: start: 20191014

REACTIONS (3)
  - Blood glucose increased [Unknown]
  - Device issue [Unknown]
  - Incorrect dose administered by product [Unknown]
